FAERS Safety Report 6206212-9 (Version None)
Quarter: 2009Q2

REPORT INFORMATION
  Report Type: 
  Country: None (occurrence: None)
  Receive Date: 20090528
  Receipt Date: 20090331
  Transmission Date: 20091009
  Serious: No
  Sender: FDA-Public Use
  Company Number: US-KINGPHARMUSA00001-K200900369

PATIENT
  Sex: Female
  Weight: 101.13 kg

DRUGS (5)
  1. AVINZA [Suspect]
     Indication: PAIN
     Dosage: 30 MG, QD
     Route: 048
     Dates: start: 20040101
  2. AVINZA [Suspect]
     Dosage: 60 MG, UNK
  3. AVINZA [Suspect]
     Dosage: 90 MG, UNK
  4. AVINZA [Suspect]
     Dosage: 120 MG, QD
     Route: 048
  5. LORTAB [Concomitant]
     Indication: BREAKTHROUGH PAIN
     Dosage: UNK
     Route: 048

REACTIONS (8)
  - DRUG DIVERSION [None]
  - DRUG INEFFECTIVE [None]
  - HEADACHE [None]
  - HYPOAESTHESIA [None]
  - PAIN [None]
  - PARAESTHESIA [None]
  - ROAD TRAFFIC ACCIDENT [None]
  - WEIGHT FLUCTUATION [None]
